FAERS Safety Report 25857038 (Version 1)
Quarter: 2025Q3

REPORT INFORMATION
  Report Type: Report from Study
  Country: US (occurrence: US)
  Receive Date: 20250929
  Receipt Date: 20250929
  Transmission Date: 20251021
  Serious: Yes (Hospitalization)
  Sender: JOHNSON AND JOHNSON
  Company Number: US-JNJFOC-20250941079

PATIENT
  Age: 67 Year
  Sex: Female

DRUGS (3)
  1. SPRAVATO [Suspect]
     Active Substance: ESKETAMINE
     Indication: Depression
     Route: 045
     Dates: start: 20241120, end: 20250423
  2. SPRAVATO [Suspect]
     Active Substance: ESKETAMINE
     Route: 045
     Dates: start: 20250430, end: 20250909
  3. SPRAVATO [Suspect]
     Active Substance: ESKETAMINE
     Route: 045
     Dates: start: 20250923, end: 20250923

REACTIONS (5)
  - Delirium [Unknown]
  - Hypoglycaemia [Unknown]
  - Troponin increased [Unknown]
  - Dissociation [Unknown]
  - Hypertension [Unknown]

NARRATIVE: CASE EVENT DATE: 20250923
